FAERS Safety Report 24110291 (Version 1)
Quarter: 2024Q3

REPORT INFORMATION
  Report Type: Spontaneous
  Country: UY (occurrence: UY)
  Receive Date: 20240718
  Receipt Date: 20240718
  Transmission Date: 20241016
  Serious: Yes (Death)
  Sender: ROCHE
  Company Number: UY-ROCHE-10000029551

PATIENT
  Age: 17 Year

DRUGS (1)
  1. HEMLIBRA [Suspect]
     Active Substance: EMICIZUMAB-KXWH
     Indication: Product used for unknown indication
     Dosage: DOSE AND FREQUENCY WERE NOT REPORTED
     Route: 065

REACTIONS (2)
  - Pneumonia [Fatal]
  - Pleural effusion [Fatal]
